FAERS Safety Report 18299656 (Version 1)
Quarter: 2020Q3

REPORT INFORMATION
  Report Type: Spontaneous
  Country: IR (occurrence: IR)
  Receive Date: 20200923
  Receipt Date: 20200923
  Transmission Date: 20201103
  Serious: Yes (Other)
  Sender: FDA-Public Use
  Company Number: IR-LUPIN PHARMACEUTICALS INC.-2020-06276

PATIENT
  Age: 11 Year
  Sex: Female
  Weight: 24 kg

DRUGS (6)
  1. OSELTAMIVIR PHOSPHATE CAPSULES [Suspect]
     Active Substance: OSELTAMIVIR PHOSPHATE
     Indication: COVID-19
     Dosage: 45 MILLIGRAM, BID
     Route: 065
  2. AZITHROMYCIN TABLETS, 250 MG [Suspect]
     Active Substance: AZITHROMYCIN
     Indication: COVID-19
     Dosage: 250 MILLIGRAM, QD
     Route: 065
  3. CEFTRIAXONE. [Suspect]
     Active Substance: CEFTRIAXONE
     Indication: COVID-19
     Dosage: 1 GRAM, BID (CAPSULE)
     Route: 065
  4. HYDROXYCHLOROQUINE SULFATE TABLETS [Suspect]
     Active Substance: HYDROXYCHLOROQUINE SULFATE
     Indication: COVID-19
     Dosage: 200 MILLIGRAM, BID
     Route: 065
  5. AZITHROMYCIN TABLETS, 250 MG [Suspect]
     Active Substance: AZITHROMYCIN
     Dosage: UNK
     Route: 065
  6. HYDROXYCHLOROQUINE SULFATE TABLETS [Suspect]
     Active Substance: HYDROXYCHLOROQUINE SULFATE
     Dosage: UNK
     Route: 065

REACTIONS (1)
  - Off label use [Unknown]
